FAERS Safety Report 6412595-7 (Version None)
Quarter: 2009Q4

REPORT INFORMATION
  Report Type: 
  Country: None (occurrence: None)
  Receive Date: 20091023
  Receipt Date: 20091013
  Transmission Date: 20100525
  Serious: Yes (Hospitalization)
  Sender: FDA-Public Use
  Company Number: PHHY2009CA17597

PATIENT
  Sex: Female

DRUGS (4)
  1. EXJADE [Suspect]
     Indication: SICKLE CELL ANAEMIA
     Dosage: 1000 MG, QD
     Route: 048
     Dates: start: 20080607
  2. EXJADE [Suspect]
     Indication: IRON OVERLOAD
     Dosage: 1500 MG, QD
  3. HYDROXYUREA [Concomitant]
     Dosage: 500 MG, TID
     Route: 048
  4. FOLIC ACID [Concomitant]
     Dosage: 5 MG, QD
     Route: 048

REACTIONS (5)
  - ANXIETY [None]
  - BLOOD IRON INCREASED [None]
  - DIARRHOEA [None]
  - SICKLE CELL ANAEMIA WITH CRISIS [None]
  - SLEEP DISORDER [None]
